FAERS Safety Report 10527133 (Version 2)
Quarter: 2014Q4

REPORT INFORMATION
  Report Type: Spontaneous
  Country: US (occurrence: US)
  Receive Date: 20141020
  Receipt Date: 20141127
  Transmission Date: 20150528
  Serious: Yes (Other)
  Sender: FDA-Public Use
  Company Number: US-UCBSA-2014014448

PATIENT
  Sex: Female
  Weight: 68 kg

DRUGS (7)
  1. KEPPRA [Suspect]
     Active Substance: LEVETIRACETAM
     Indication: EPILEPSY
     Dosage: 750 MG 2 DAILY
  2. KEPPRA [Suspect]
     Active Substance: LEVETIRACETAM
     Dosage: 200 MG IN AM, 200 MG IN PM
     Route: 048
  3. HUMALOG [Concomitant]
     Active Substance: INSULIN LISPRO
     Indication: DIABETES MELLITUS
     Dosage: UNK
  4. MAXALT [Concomitant]
     Active Substance: RIZATRIPTAN BENZOATE
     Indication: DIABETES MELLITUS
     Dosage: UNK
  5. LEVEMIR [Concomitant]
     Active Substance: INSULIN DETEMIR
     Indication: DIABETES MELLITUS
     Dosage: UNK
  6. SYNTHROID [Concomitant]
     Active Substance: LEVOTHYROXINE SODIUM
     Indication: DIABETES MELLITUS
  7. TOPAMAX [Concomitant]
     Active Substance: TOPIRAMATE
     Indication: DIABETES MELLITUS
     Dosage: UNK

REACTIONS (4)
  - Seizure [Unknown]
  - Dementia [Not Recovered/Not Resolved]
  - Petit mal epilepsy [Unknown]
  - Generalised tonic-clonic seizure [Unknown]
